FAERS Safety Report 4280126-6 (Version None)
Quarter: 2004Q1

REPORT INFORMATION
  Report Type: 
  Country: None (occurrence: None)
  Receive Date: 20040123
  Receipt Date: 20040119
  Transmission Date: 20041129
  Serious: Yes (Death)
  Sender: FDA-Public Use
  Company Number: KII-2001-0002081

PATIENT
  Age: 50 Year
  Sex: Female

DRUGS (1)
  1. OXYCONTIN [Suspect]
     Indication: CANCER PAIN
     Dosage: 180 MG, BID, ORAL
     Route: 048

REACTIONS (2)
  - CONDITION AGGRAVATED [None]
  - LUNG CANCER METASTATIC [None]
